FAERS Safety Report 4337052-3 (Version None)
Quarter: 2004Q1

REPORT INFORMATION
  Report Type: 
  Country: None (occurrence: None)
  Receive Date: 20040329
  Receipt Date: 20040203
  Transmission Date: 20041129
  Serious: No
  Sender: FDA-Public Use
  Company Number: USA040258425

PATIENT
  Age: 7 Year
  Sex: Male
  Weight: 25 kg

DRUGS (4)
  1. STRATTERA [Suspect]
     Indication: ATTENTION DEFICIT/HYPERACTIVITY DISORDER
     Dosage: 30 MG
     Dates: start: 20040101
  2. MULTIVITAMIN [Concomitant]
  3. METADATE METHYLPHENIDATE) [Concomitant]
  4. ADDERALL 10 [Concomitant]

REACTIONS (1)
  - RETCHING [None]
